FAERS Safety Report 5215389-3 (Version None)
Quarter: 2007Q1

REPORT INFORMATION
  Report Type: 
  Country: None (occurrence: None)
  Receive Date: 20070116
  Receipt Date: 20070102
  Transmission Date: 20070707
  Serious: Yes (Life-Threatening, Other)
  Sender: FDA-Public Use
  Company Number: 15450

PATIENT
  Age: 12 Year
  Sex: Female

DRUGS (2)
  1. MORPHINE [Suspect]
     Indication: ABDOMINAL PAIN
  2. ACETAMINOPHEN [Suspect]
     Indication: ABDOMINAL PAIN
     Dosage: 50 MG DAILY IV
     Route: 042

REACTIONS (7)
  - COLITIS ULCERATIVE [None]
  - DRUG INEFFECTIVE [None]
  - LETHARGY [None]
  - MEGACOLON [None]
  - PAIN [None]
  - PALLOR [None]
  - RECTAL HAEMORRHAGE [None]
